FAERS Safety Report 9398933 (Version 2)
Quarter: 2013Q3

REPORT INFORMATION
  Report Type: Spontaneous
  Country: FR (occurrence: FR)
  Receive Date: 20130712
  Receipt Date: 20130815
  Transmission Date: 20140515
  Serious: Yes (Other)
  Sender: FDA-Public Use
  Company Number: FR-TEVA-417398ISR

PATIENT
  Age: 90 Year
  Sex: Female

DRUGS (3)
  1. FUROSEMIDE TEVA [Suspect]
     Route: 048
     Dates: start: 201305, end: 20130607
  2. ACE INHIBITORS [Concomitant]
  3. BETA-BLOCKERS [Concomitant]

REACTIONS (7)
  - Acute pulmonary oedema [Recovered/Resolved]
  - Somnolence [Recovered/Resolved]
  - Memory impairment [Recovered/Resolved]
  - Fatigue [Recovered/Resolved]
  - Muscular weakness [Recovered/Resolved]
  - Weight increased [Recovered/Resolved]
  - Crepitations [Recovered/Resolved]
